FAERS Safety Report 7621186-1 (Version None)
Quarter: 2011Q3

REPORT INFORMATION
  Report Type: 
  Country: None (occurrence: None)
  Receive Date: 20110719
  Receipt Date: 20110707
  Transmission Date: 20111222
  Serious: Yes (Death)
  Sender: FDA-Public Use
  Company Number: US-PFIZER INC-2010001463

PATIENT
  Age: 52 Year
  Sex: Female

DRUGS (3)
  1. AMLODIPINE BESYLATE [Suspect]
     Route: 048
  2. METFORMIN HCL [Suspect]
     Route: 048
  3. BENAZEPRIL HYDROCHLORIDE [Suspect]
     Route: 048

REACTIONS (1)
  - COMPLETED SUICIDE [None]
